FAERS Safety Report 7023632-3 (Version None)
Quarter: 2010Q3

REPORT INFORMATION
  Report Type: 
  Country: None (occurrence: None)
  Receive Date: 20100930
  Receipt Date: 20100930
  Transmission Date: 20110219
  Serious: Yes (Other)
  Sender: FDA-Public Use
  Company Number: None

PATIENT
  Age: 42 Year
  Sex: Female
  Weight: 72.7 kg

DRUGS (6)
  1. CITALOPRAM HYDROBROMIDE [Suspect]
     Indication: DEPRESSION
     Dosage: 20MG 1X DAILY 047 ORAL
     Route: 048
     Dates: start: 20091101, end: 20100901
  2. BUPROPION [Concomitant]
  3. CLONAZEPAM [Concomitant]
  4. TOPIRAMATE [Concomitant]
  5. SINGULAIR [Concomitant]
  6. ZEGERID [Concomitant]

REACTIONS (1)
  - ALOPECIA [None]
